FAERS Safety Report 24911345 (Version 2)
Quarter: 2025Q1

REPORT INFORMATION
  Report Type: Report from Study
  Country: CA (occurrence: CA)
  Receive Date: 20250131
  Receipt Date: 20250303
  Transmission Date: 20250408
  Serious: Yes (Hospitalization)
  Sender: CSL BEHRING
  Company Number: CA-Vifor (International) Inc.-VIT-2024-07050

PATIENT
  Age: 84 Year
  Sex: Female
  Weight: 56.8 kg

DRUGS (2)
  1. VELTASSA [Suspect]
     Active Substance: PATIROMER
     Indication: Hyperkalaemia
     Dosage: MOST RECENT DOSE: 05-AUG-2024
     Route: 048
     Dates: start: 202402
  2. VELTASSA [Suspect]
     Active Substance: PATIROMER
     Indication: Renal failure

REACTIONS (3)
  - Abdominal pain [Unknown]
  - Hypertension [Unknown]
  - Off label use [Unknown]

NARRATIVE: CASE EVENT DATE: 20240805
